FAERS Safety Report 7970384-6 (Version None)
Quarter: 2011Q4

REPORT INFORMATION
  Report Type: 
  Country: None (occurrence: None)
  Receive Date: 20111212
  Receipt Date: 20111128
  Transmission Date: 20120403
  Serious: Yes (Other)
  Sender: FDA-Public Use
  Company Number: PHHY2011CA30038

PATIENT
  Sex: Female

DRUGS (1)
  1. SANDOSTATIN LAR [Suspect]
     Indication: METASTATIC CARCINOID TUMOUR
     Dosage: 20 MG, EVERY 4 WEEKS
     Route: 030
     Dates: start: 20101018

REACTIONS (6)
  - DIARRHOEA [None]
  - FLATULENCE [None]
  - VOMITING [None]
  - NEOPLASM MALIGNANT [None]
  - INFLUENZA [None]
  - RESPIRATORY TRACT INFECTION [None]
